FAERS Safety Report 4309703-0 (Version None)
Quarter: 2004Q1

REPORT INFORMATION
  Report Type: 
  Country: None (occurrence: None)
  Receive Date: 20040301
  Receipt Date: 20040216
  Transmission Date: 20041129
  Serious: Yes (Death)
  Sender: FDA-Public Use
  Company Number: 163-20785-04010306

PATIENT
  Age: 56 Year
  Sex: Male
  Weight: 69.4003 kg

DRUGS (8)
  1. THALOMID [Suspect]
     Indication: NEOPLASM MALIGNANT
     Dosage: SEE IMAGE
     Route: 048
     Dates: end: 20031105
  2. THALOMID [Suspect]
     Indication: NEOPLASM MALIGNANT
     Dosage: SEE IMAGE
     Route: 048
     Dates: start: 20031016
  3. IRON (IRON) [Concomitant]
  4. COLACE (DOCUSASTE SODIUM) [Concomitant]
  5. ROBITUSSIN [Concomitant]
  6. PAXIL [Concomitant]
  7. XYLOCAINE VISCOUS [Concomitant]
  8. MORPHINE SULFATE [Concomitant]

REACTIONS (16)
  - CHEST DISCOMFORT [None]
  - CONSTIPATION [None]
  - DIZZINESS [None]
  - DYSKINESIA [None]
  - DYSPNOEA [None]
  - EAR PAIN [None]
  - HAEMOPTYSIS [None]
  - HYPOACUSIS [None]
  - IRON DEFICIENCY ANAEMIA [None]
  - MALIGNANT NEOPLASM PROGRESSION [None]
  - METASTATIC NEOPLASM [None]
  - NEOPLASM [None]
  - SWELLING FACE [None]
  - TONGUE OEDEMA [None]
  - TRACHEAL OBSTRUCTION [None]
  - VENOUS OCCLUSION [None]
